FAERS Safety Report 13627889 (Version 1)
Quarter: 2017Q2

REPORT INFORMATION
  Report Type: Spontaneous
  Country: US (occurrence: US)
  Receive Date: 20170607
  Receipt Date: 20170607
  Transmission Date: 20170830
  Serious: Yes (Disabling)
  Sender: FDA-Public Use
  Company Number: None

PATIENT
  Age: 51 Year
  Sex: Female
  Weight: 53.1 kg

DRUGS (8)
  1. DICLOFENAC [Concomitant]
     Active Substance: DICLOFENAC
  2. PLAQUENIL [Concomitant]
     Active Substance: HYDROXYCHLOROQUINE SULFATE
  3. MULTI VITAMIN [Concomitant]
     Active Substance: VITAMINS
  4. ASPIRIN. [Concomitant]
     Active Substance: ASPIRIN
  5. STEROIDS [Concomitant]
     Active Substance: UNSPECIFIED INGREDIENT
  6. FISH OIL [Concomitant]
     Active Substance: FISH OIL
  7. CIPRO [Suspect]
     Active Substance: CIPROFLOXACIN HYDROCHLORIDE
     Indication: URINARY TRACT INFECTION
     Dosage: ?          QUANTITY:3 TABLET(S);?TWICE DAILY ORAL
     Route: 048
     Dates: start: 20160207, end: 20160208
  8. CALCIUM [Concomitant]
     Active Substance: CALCIUM

REACTIONS (7)
  - Pyrexia [None]
  - Peripheral swelling [None]
  - Loss of personal independence in daily activities [None]
  - Pain [None]
  - Hypoaesthesia [None]
  - Paraesthesia [None]
  - Joint swelling [None]

NARRATIVE: CASE EVENT DATE: 20160207
